FAERS Safety Report 7024065-6 (Version None)
Quarter: 2010Q4

REPORT INFORMATION
  Report Type: 
  Country: None (occurrence: None)
  Receive Date: 20101001
  Receipt Date: 20100924
  Transmission Date: 20110411
  Serious: Yes (Hospitalization)
  Sender: FDA-Public Use
  Company Number: FR-SANOFI-AVENTIS-2010SA057250

PATIENT
  Age: 72 Year
  Sex: Female

DRUGS (10)
  1. DEPAKOTE [Suspect]
     Indication: PRODUCT USED FOR UNKNOWN INDICATION
     Route: 048
  2. LASIX [Suspect]
     Route: 048
  3. BISOPROLOL [Suspect]
     Route: 048
     Dates: end: 20100522
  4. AMLODIPINE [Suspect]
     Route: 048
     Dates: end: 20100522
  5. EUPRESSYL [Suspect]
     Route: 048
     Dates: end: 20100522
  6. ZESTRIL [Suspect]
     Route: 048
     Dates: start: 20100507, end: 20100522
  7. PREVISCAN [Concomitant]
     Indication: CARDIOVASCULAR EVENT PROPHYLAXIS
     Route: 048
     Dates: end: 20100522
  8. KARDEGIC [Concomitant]
     Indication: CARDIOVASCULAR EVENT PROPHYLAXIS
     Route: 048
  9. SEROPLEX [Concomitant]
     Indication: PRODUCT USED FOR UNKNOWN INDICATION
     Route: 048
     Dates: start: 20100320, end: 20100507
  10. ANAFRANIL [Concomitant]
     Indication: PRODUCT USED FOR UNKNOWN INDICATION
     Route: 048
     Dates: start: 20100507

REACTIONS (2)
  - FALL [None]
  - HYPONATRAEMIA [None]
